FAERS Safety Report 6498120-3 (Version None)
Quarter: 2009Q4

REPORT INFORMATION
  Report Type: 
  Country: None (occurrence: None)
  Receive Date: 20091215
  Receipt Date: 20091202
  Transmission Date: 20100525
  Serious: Yes (Death, Hospitalization, Other)
  Sender: FDA-Public Use
  Company Number: US-ELI_LILLY_AND_COMPANY-US200912000750

PATIENT
  Sex: Female

DRUGS (1)
  1. ZYPREXA [Suspect]
     Dosage: 5 MG, 2/D

REACTIONS (6)
  - DEATH [None]
  - IMMUNE SYSTEM DISORDER [None]
  - MOVEMENT DISORDER [None]
  - NECROTISING FASCIITIS [None]
  - OROPHARYNGEAL PAIN [None]
  - PNEUMONIA [None]
